FAERS Safety Report 4566460-0 (Version None)
Quarter: 2005Q1

REPORT INFORMATION
  Report Type: 
  Country: None (occurrence: None)
  Receive Date: 20050201
  Receipt Date: 20050120
  Transmission Date: 20050727
  Serious: Yes (Hospitalization)
  Sender: FDA-Public Use
  Company Number: PT-BRISTOL-MYERS SQUIBB COMPANY-12832010

PATIENT
  Age: 7 Year
  Sex: Female

DRUGS (1)
  1. PROZEF FOR OS 125 MG/5 ML [Suspect]
     Indication: TONSILLITIS
     Route: 048
     Dates: start: 20030101, end: 20030101

REACTIONS (4)
  - ANGIONEUROTIC OEDEMA [None]
  - FACE OEDEMA [None]
  - OEDEMA PERIPHERAL [None]
  - URTICARIA GENERALISED [None]
